FAERS Safety Report 10046988 (Version 1)
Quarter: 2014Q1

REPORT INFORMATION
  Report Type: Spontaneous
  Country: US (occurrence: None)
  Receive Date: 20140328
  Receipt Date: 20140328
  Transmission Date: 20141002
  Serious: Yes (Other)
  Sender: FDA-Public Use
  Company Number: None

PATIENT
  Age: 53 Year
  Sex: Female
  Weight: 90.63 kg

DRUGS (2)
  1. QUINAPRIL HYDROCHLORIDE [Suspect]
     Dosage: 40 MG ONCE PO
     Route: 048
     Dates: start: 20090605
  2. LISINOPRIL 20MG [Suspect]
     Dosage: 20 MG  ONCE  PO
     Route: 048

REACTIONS (4)
  - Dizziness [None]
  - Headache [None]
  - Nausea [None]
  - Oedema mouth [None]
